FAERS Safety Report 10072607 (Version 2)
Quarter: 2014Q2

REPORT INFORMATION
  Report Type: Spontaneous
  Country: ES (occurrence: ES)
  Receive Date: 20140411
  Receipt Date: 20140423
  Transmission Date: 20141212
  Serious: Yes (Other)
  Sender: FDA-Public Use
  Company Number: ES-ASTRAZENECA-2014SE25003

PATIENT
  Sex: Female

DRUGS (3)
  1. OMEPRAZOLE [Suspect]
     Route: 048
  2. ESOMEPRAZOLE [Suspect]
     Route: 048
  3. PANTOPRAZOLE [Suspect]
     Route: 065

REACTIONS (2)
  - Dyspnoea [Unknown]
  - Allergy test positive [Unknown]
